FAERS Safety Report 9044245 (Version 1)
Quarter: 2013Q1

REPORT INFORMATION
  Report Type: Report from Study
  Country: US (occurrence: US)
  Receive Date: 20130131
  Receipt Date: 20130131
  Transmission Date: 20140127
  Serious: No
  Sender: FDA-Public Use
  Company Number: US-ABBOTT-12P-163-0984413-00

PATIENT
  Age: 75 Year
  Sex: Female

DRUGS (7)
  1. HUMIRA [Suspect]
     Indication: PSORIATIC ARTHROPATHY
     Dates: start: 20111016
  2. ASACOL [Concomitant]
     Indication: COLITIS ULCERATIVE
     Dosage: 2 TABS IN AM + 2 TABS IN PM
  3. THYROXINE [Concomitant]
     Indication: HYPOTHYROIDISM
     Dosage: DAILY
  4. NAPROXEN [Concomitant]
     Indication: INFLAMMATION
  5. ULTRAM [Concomitant]
     Indication: ARTHRALGIA
     Dosage: 1-2 TABLETS DAILY
  6. ZOLOFT [Concomitant]
     Indication: CRYING
     Dosage: SOMETIMES 1/2 TAB DAILY
  7. RECLAST IV INFUSION [Concomitant]
     Indication: OSTEOPOROSIS

REACTIONS (3)
  - Nasopharyngitis [Not Recovered/Not Resolved]
  - Rash macular [Not Recovered/Not Resolved]
  - Rash macular [Not Recovered/Not Resolved]
